FAERS Safety Report 9003360 (Version 3)
Quarter: 2013Q3

REPORT INFORMATION
  Report Type: Spontaneous
  Country: US (occurrence: US)
  Receive Date: 20130108
  Receipt Date: 20130704
  Transmission Date: 20140515
  Serious: Yes (Other)
  Sender: FDA-Public Use
  Company Number: CHPA2013US000666

PATIENT
  Age: 77 Year
  Sex: Female

DRUGS (3)
  1. VOLTAREN GEL [Suspect]
     Indication: MUSCULOSKELETAL PAIN
     Dosage: USING DOSING CARD, QID
     Route: 061
     Dates: start: 201207
  2. CLINDAMYCIN [Concomitant]
  3. TYLENOL [Concomitant]
     Indication: PAIN

REACTIONS (4)
  - Arthritis [Unknown]
  - Off label use [Unknown]
  - Therapeutic response unexpected [Unknown]
  - Drug administered at inappropriate site [Unknown]
